FAERS Safety Report 6150099-X (Version None)
Quarter: 2009Q2

REPORT INFORMATION
  Report Type: 
  Country: None (occurrence: None)
  Receive Date: 20090409
  Receipt Date: 20090401
  Transmission Date: 20091009
  Serious: Yes (Hospitalization)
  Sender: FDA-Public Use
  Company Number: SE-PFIZER INC-2009191810

PATIENT

DRUGS (26)
  1. PREDNISOLONE [Suspect]
     Indication: POLYMYALGIA RHEUMATICA
     Dosage: 10 MG, 1X/DAY
     Route: 048
  2. CIPROFLOXACIN HCL [Suspect]
     Indication: URINARY TRACT INFECTION
     Dosage: UNK
     Route: 048
     Dates: start: 20090120, end: 20090122
  3. ALVEDON [Concomitant]
  4. NEXIUM [Concomitant]
  5. XALATAN [Concomitant]
  6. SPIRIVA [Concomitant]
  7. FELODIPINE [Concomitant]
  8. SERETIDE EVOHALER [Concomitant]
  9. KESTINE [Concomitant]
  10. ACETYLCYSTEINE [Concomitant]
  11. SIMVASTATIN [Concomitant]
  12. ORALOVITE [Concomitant]
  13. PYRIDOXIN ^RECIP^ [Concomitant]
  14. ETALPHA [Concomitant]
  15. FLUNITRAZEPAM [Concomitant]
  16. AMINESS [Concomitant]
  17. TROMBYL [Concomitant]
  18. MIANSERIN [Concomitant]
  19. VISCOTEARS [Concomitant]
  20. TRADOLAN [Concomitant]
  21. TRIOBE [Concomitant]
  22. FORLAX [Concomitant]
  23. EMCONCOR CHF [Concomitant]
  24. SODIUM PICOSULFATE [Concomitant]
  25. LANTHANUM CARBONATE [Concomitant]
  26. CARBAMID [Concomitant]

REACTIONS (1)
  - TENDON RUPTURE [None]
